FAERS Safety Report 12742195 (Version 1)
Quarter: 2016Q3

REPORT INFORMATION
  Report Type: Spontaneous
  Country: US (occurrence: US)
  Receive Date: 20160914
  Receipt Date: 20160914
  Transmission Date: 20161109
  Serious: Yes (Hospitalization, Other)
  Sender: FDA-Public Use
  Company Number: US-009507513-1012USA03782

PATIENT
  Sex: Female
  Weight: 73.03 kg

DRUGS (10)
  1. ALENDRONATE SODIUM. [Suspect]
     Active Substance: ALENDRONATE SODIUM
     Dosage: 70 MG, UNK
     Route: 048
     Dates: start: 20080803, end: 20091102
  2. FOSAMAX [Suspect]
     Active Substance: ALENDRONATE SODIUM
     Dosage: 140 MG, QW
     Route: 048
     Dates: start: 20001029
  3. PREMARIN [Concomitant]
     Active Substance: ESTROGENS, CONJUGATED
  4. VITAMINS (UNSPECIFIED) [Concomitant]
     Active Substance: VITAMINS
     Dosage: UNK UNK, QD
  5. FOSAMAX [Suspect]
     Active Substance: ALENDRONATE SODIUM
     Indication: OSTEOPOROSIS
     Dosage: 10 MG, QD
     Route: 048
     Dates: start: 19980428, end: 19980721
  6. FOSAMAX [Suspect]
     Active Substance: ALENDRONATE SODIUM
     Dosage: 70 MG, QW
     Route: 048
     Dates: start: 20001027, end: 20100309
  7. FOSAMAX [Suspect]
     Active Substance: ALENDRONATE SODIUM
     Dosage: 70 MG, QW
     Route: 048
     Dates: start: 20011219, end: 201005
  8. OSCAL [Concomitant]
     Active Substance: CALCIUM CARBONATE
  9. ALENDRONATE SODIUM. [Suspect]
     Active Substance: ALENDRONATE SODIUM
     Indication: OSTEOPOROSIS
     Dosage: 70 MG, QW
     Route: 048
     Dates: start: 20100105
  10. CALCIUM (UNSPECIFIED) (+) VITAMIN D (UNSPECIFIED) [Concomitant]
     Active Substance: CALCIUM CARBONATE\VITAMIN D
     Dosage: UNK UNK, BID
     Route: 048

REACTIONS (117)
  - Femur fracture [Unknown]
  - Bone pain [Unknown]
  - Temporomandibular joint syndrome [Unknown]
  - Musculoskeletal pain [Not Recovered/Not Resolved]
  - Urinary tract infection [Not Recovered/Not Resolved]
  - Acrochordon [Unknown]
  - Muscle strain [Not Recovered/Not Resolved]
  - Hot flush [Unknown]
  - Arthralgia [Unknown]
  - Upper respiratory tract infection [Not Recovered/Not Resolved]
  - Cellulitis [Not Recovered/Not Resolved]
  - Oedema peripheral [Not Recovered/Not Resolved]
  - Nasopharyngitis [Not Recovered/Not Resolved]
  - Sleep apnoea syndrome [Unknown]
  - Fall [Unknown]
  - Arthritis [Unknown]
  - Musculoskeletal pain [Not Recovered/Not Resolved]
  - Overdose [Unknown]
  - Ureterolithiasis [Unknown]
  - Pelvic mass [Unknown]
  - Fatigue [Not Recovered/Not Resolved]
  - Osteoarthritis [Not Recovered/Not Resolved]
  - Headache [Not Recovered/Not Resolved]
  - Ligament sprain [Unknown]
  - Muscle spasms [Unknown]
  - Lower respiratory tract infection [Unknown]
  - Dizziness [Recovered/Resolved]
  - Leukocytosis [Unknown]
  - Bone pain [Unknown]
  - Cystitis [Not Recovered/Not Resolved]
  - Skin papilloma [Unknown]
  - Large intestine polyp [Unknown]
  - Anal fissure [Unknown]
  - Adverse event [Unknown]
  - Epicondylitis [Unknown]
  - Hypothyroidism [Not Recovered/Not Resolved]
  - Synovial cyst [Unknown]
  - Synovial cyst [Unknown]
  - Limb injury [Unknown]
  - Skin abrasion [Unknown]
  - Constipation [Not Recovered/Not Resolved]
  - Dyspnoea exertional [Not Recovered/Not Resolved]
  - Rash [Unknown]
  - Fungal infection [Unknown]
  - Osteopenia [Unknown]
  - Oedema peripheral [Not Recovered/Not Resolved]
  - Limb mass [Unknown]
  - Gastroenteritis viral [Unknown]
  - Dyslipidaemia [Unknown]
  - Nasal congestion [Unknown]
  - Cardiac disorder [Unknown]
  - Carpal tunnel syndrome [Not Recovered/Not Resolved]
  - Neck pain [Unknown]
  - Hypoaesthesia [Unknown]
  - Weight increased [Not Recovered/Not Resolved]
  - Nail disorder [Unknown]
  - Headache [Recovered/Resolved]
  - Arthralgia [Unknown]
  - Insomnia [Unknown]
  - Aortic stenosis [Unknown]
  - Haemorrhoids [Unknown]
  - Cardiovascular disorder [Unknown]
  - Dysphagia [Unknown]
  - Gastrooesophageal reflux disease [Not Recovered/Not Resolved]
  - Gingival disorder [Unknown]
  - Faeces hard [Unknown]
  - Contusion [Unknown]
  - Pyrexia [Not Recovered/Not Resolved]
  - Cyst [Unknown]
  - Rhinitis [Not Recovered/Not Resolved]
  - Pain in extremity [Unknown]
  - Pain [Unknown]
  - Adverse event [Unknown]
  - Ligament sprain [Unknown]
  - Back pain [Not Recovered/Not Resolved]
  - Synovial cyst [Unknown]
  - Carpal tunnel syndrome [Not Recovered/Not Resolved]
  - Appendix disorder [Unknown]
  - Depression [Not Recovered/Not Resolved]
  - Hydronephrosis [Unknown]
  - Meniscus injury [Not Recovered/Not Resolved]
  - Wound [Unknown]
  - Abdominal pain lower [Unknown]
  - Pharyngitis [Not Recovered/Not Resolved]
  - Aortic valve incompetence [Unknown]
  - Cardiac murmur [Unknown]
  - Cerebral small vessel ischaemic disease [Unknown]
  - Intervertebral disc degeneration [Unknown]
  - Patellofemoral pain syndrome [Unknown]
  - Complication associated with device [Unknown]
  - Bone disorder [Not Recovered/Not Resolved]
  - Fall [Unknown]
  - Sinus disorder [Not Recovered/Not Resolved]
  - Gastrooesophageal reflux disease [Unknown]
  - Ear pain [Unknown]
  - Cough [Not Recovered/Not Resolved]
  - Chronic gastritis [Unknown]
  - Sinusitis [Not Recovered/Not Resolved]
  - Abdominal distension [Unknown]
  - Stress [Not Recovered/Not Resolved]
  - Appendicitis [Unknown]
  - Aortic arteriosclerosis [Unknown]
  - Pulmonary hypertension [Unknown]
  - Skin lesion [Unknown]
  - Rotator cuff syndrome [Recovering/Resolving]
  - Myalgia [Unknown]
  - Chest pain [Not Recovered/Not Resolved]
  - Nephrolithiasis [Unknown]
  - Head injury [Unknown]
  - Hypertension [Not Recovered/Not Resolved]
  - Pain in extremity [Unknown]
  - Bronchitis [Unknown]
  - Joint laxity [Unknown]
  - Haemorrhoids [Unknown]
  - Varicose vein [Unknown]
  - Diverticulum [Unknown]
  - Chest pain [Unknown]

NARRATIVE: CASE EVENT DATE: 19980721
